FAERS Safety Report 17028267 (Version 2)
Quarter: 2019Q4

REPORT INFORMATION
  Report Type: Report from Study
  Country: CA (occurrence: CA)
  Receive Date: 20191113
  Receipt Date: 20191218
  Transmission Date: 20200122
  Serious: Yes (Hospitalization)
  Sender: FDA-Public Use
  Company Number: PHHY2019CA057178

PATIENT
  Age: 38 Year
  Sex: Female

DRUGS (2)
  1. SANDOSTATIN LAR DEPOT [Suspect]
     Active Substance: OCTREOTIDE ACETATE
     Indication: CARCINOID TUMOUR
     Dosage: 30 MG, QMO (EVERY 4 WEEKS)
     Route: 030
     Dates: start: 20181220
  2. SANDOSTATIN LAR DEPOT [Suspect]
     Active Substance: OCTREOTIDE ACETATE
     Dosage: 30 MG, QMO
     Route: 030
     Dates: start: 20190610

REACTIONS (19)
  - Dysmenorrhoea [Unknown]
  - Kidney infection [Unknown]
  - Pyrexia [Unknown]
  - General physical health deterioration [Unknown]
  - Gait inability [Unknown]
  - Dyspepsia [Unknown]
  - Abdominal pain [Unknown]
  - Weight decreased [Unknown]
  - Dysuria [Unknown]
  - Blood urine present [Unknown]
  - Polyuria [Recovering/Resolving]
  - Cystitis [Unknown]
  - Muscle spasms [Unknown]
  - Pain [Unknown]
  - Injection site pain [Unknown]
  - Diarrhoea [Not Recovered/Not Resolved]
  - Pain in extremity [Unknown]
  - Migraine [Unknown]
  - Feeling cold [Unknown]

NARRATIVE: CASE EVENT DATE: 2019
